FAERS Safety Report 13733748 (Version 1)
Quarter: 2017Q3

REPORT INFORMATION
  Report Type: Spontaneous
  Country: GB (occurrence: GB)
  Receive Date: 20170707
  Receipt Date: 20170707
  Transmission Date: 20171127
  Serious: Yes (Hospitalization)
  Sender: FDA-Public Use
  Company Number: GB-NOVOPROD-552288

PATIENT
  Age: 59 Year
  Sex: Male

DRUGS (1)
  1. NOVOMIX [Suspect]
     Active Substance: INSULIN ASPART
     Indication: PRODUCT USED FOR UNKNOWN INDICATION
     Dosage: IN THE MORNING DURING BREAKFAST
     Route: 065

REACTIONS (3)
  - Loss of consciousness [Unknown]
  - Blood glucose decreased [Unknown]
  - Drug administration error [Unknown]

NARRATIVE: CASE EVENT DATE: 20170113
